FAERS Safety Report 16168908 (Version 1)
Quarter: 2019Q2

REPORT INFORMATION
  Report Type: Spontaneous
  Country: US (occurrence: US)
  Receive Date: 20190408
  Receipt Date: 20190408
  Transmission Date: 20190711
  Serious: Yes (Hospitalization, Other)
  Sender: FDA-Public Use
  Company Number: US-MICRO LABS LIMITED-ML2019-00859

PATIENT
  Age: 69 Year
  Sex: Male

DRUGS (11)
  1. SIMVASTATIN. [Suspect]
     Active Substance: SIMVASTATIN
     Indication: HYPERLIPIDAEMIA
     Dosage: MORE THAN 10 YEARS
  2. GLIPIZIDE. [Concomitant]
     Active Substance: GLIPIZIDE
  3. CARVEDILOL. [Concomitant]
     Active Substance: CARVEDILOL
  4. EZETIMIBE. [Concomitant]
     Active Substance: EZETIMIBE
  5. JANUVIA [Interacting]
     Active Substance: SITAGLIPTIN PHOSPHATE
     Indication: TYPE 2 DIABETES MELLITUS
  6. GABAPENTIN. [Concomitant]
     Active Substance: GABAPENTIN
  7. QUINAPRIL. [Concomitant]
     Active Substance: QUINAPRIL
  8. AMLODIPINE [Concomitant]
     Active Substance: AMLODIPINE BESYLATE
     Indication: HYPERTENSION
  9. HYDROCHLOROTHIAZIDE. [Concomitant]
     Active Substance: HYDROCHLOROTHIAZIDE
  10. CLOPIDOGREL [Concomitant]
     Active Substance: CLOPIDOGREL BISULFATE
  11. METFORMIN [Concomitant]
     Active Substance: METFORMIN HYDROCHLORIDE
     Indication: TYPE 2 DIABETES MELLITUS

REACTIONS (3)
  - Drug interaction [Recovered/Resolved]
  - Acute kidney injury [Recovered/Resolved]
  - Rhabdomyolysis [Recovered/Resolved]
